FAERS Safety Report 9892933 (Version 5)
Quarter: 2014Q3

REPORT INFORMATION
  Report Type: Spontaneous
  Country: US (occurrence: US)
  Receive Date: 20140213
  Receipt Date: 20140905
  Transmission Date: 20150326
  Serious: Yes (Hospitalization)
  Sender: FDA-Public Use
  Company Number: US-BIOGENIDEC-2014BI012142

PATIENT
  Age: 70 Year
  Sex: Female

DRUGS (18)
  1. HYDROCODONE ACETAMINOPHEN [Concomitant]
     Active Substance: ACETAMINOPHEN\HYDROCODONE BITARTRATE
  2. OXYCONTIN [Concomitant]
     Active Substance: OXYCODONE HYDROCHLORIDE
  3. SENNA [Concomitant]
     Active Substance: SENNA LEAF\SENNOSIDES\SENNOSIDES A AND B
  4. TAMSULOSIN [Concomitant]
     Active Substance: TAMSULOSIN
  5. TECFIDERA [Suspect]
     Active Substance: DIMETHYL FUMARATE
     Indication: MULTIPLE SCLEROSIS
     Route: 048
     Dates: end: 20131220
  6. ACETAMINOPHEN. [Concomitant]
     Active Substance: ACETAMINOPHEN
  7. AMBIEN [Concomitant]
     Active Substance: ZOLPIDEM TARTRATE
  8. BACLOFEN. [Concomitant]
     Active Substance: BACLOFEN
  9. CALCIUM PLUS VITAMIN D [Concomitant]
     Active Substance: CALCIUM\VITAMIN D
  10. CITALOPRAM [Concomitant]
     Active Substance: CITALOPRAM HYDROBROMIDE
  11. TECFIDERA [Suspect]
     Active Substance: DIMETHYL FUMARATE
     Indication: MULTIPLE SCLEROSIS
     Route: 048
     Dates: start: 20130428
  12. MIRALAX [Concomitant]
     Active Substance: POLYETHYLENE GLYCOL 3350
  13. PROLIA [Concomitant]
     Active Substance: DENOSUMAB
     Indication: OSTEOPOROSIS
     Dates: start: 20131219
  14. TEGRETOL [Concomitant]
     Active Substance: CARBAMAZEPINE
  15. DIAZEPAM. [Concomitant]
     Active Substance: DIAZEPAM
     Route: 048
  16. TECFIDERA [Suspect]
     Active Substance: DIMETHYL FUMARATE
     Indication: MULTIPLE SCLEROSIS
     Route: 048
     Dates: start: 20130903
  17. ATELVIA [Concomitant]
     Active Substance: RISEDRONATE SODIUM
  18. GABAPENTIN. [Concomitant]
     Active Substance: GABAPENTIN

REACTIONS (12)
  - Lung adenocarcinoma stage I [Recovered/Resolved]
  - Cough [Unknown]
  - Gastrointestinal disorder [Unknown]
  - Prescribed underdose [Unknown]
  - Multiple sclerosis relapse [Unknown]
  - Asthenia [Unknown]
  - Skin ulcer [Unknown]
  - Urinary incontinence [Unknown]
  - Dyspnoea [Unknown]
  - Decubitus ulcer [Unknown]
  - Faecal incontinence [Unknown]
  - Neurological symptom [Unknown]

NARRATIVE: CASE EVENT DATE: 201309
